FAERS Safety Report 7635140-7 (Version None)
Quarter: 2011Q3

REPORT INFORMATION
  Report Type: 
  Country: None (occurrence: None)
  Receive Date: 20110718
  Receipt Date: 20110705
  Transmission Date: 20111222
  Serious: Yes (Hospitalization)
  Sender: FDA-Public Use
  Company Number: 2011JP005734

PATIENT
  Age: 63 Year
  Sex: Male
  Weight: 45 kg

DRUGS (5)
  1. TS 1 (GIMERACIL, OTERACIL POTASSIUM, TEGAFUR) [Suspect]
     Indication: GASTRIC CANCER
     Dosage: 45 MG BID, 2W ON 1W OFF, ORAL
     Route: 048
     Dates: start: 20010628
  2. TS 1 (GIMERACIL, OTERACIL POTASSIUM, TEGAFUR) [Suspect]
     Indication: GASTRIC CANCER
     Dosage: 45 MG BID, 2W ON 1W OFF, ORAL
     Route: 048
     Dates: start: 20110425
  3. ALOXI [Suspect]
     Indication: PROPHYLAXIS OF NAUSEA AND VOMITING
     Dosage: INTRAVENOUS
     Route: 042
     Dates: start: 20110101
  4. CISPLATIN [Suspect]
     Indication: GASTRIC CANCER
     Dosage: 60 MG/M2, SINGLE, IV DRIP
     Route: 041
     Dates: start: 20110628
  5. CISPLATIN [Suspect]
     Indication: GASTRIC CANCER
     Dosage: 60 MG/M2, SINGLE, IV DRIP
     Route: 041
     Dates: start: 20110425

REACTIONS (2)
  - CONSTIPATION [None]
  - ILEUS [None]
